FAERS Safety Report 6315970-4 (Version None)
Quarter: 2009Q3

REPORT INFORMATION
  Report Type: 
  Country: None (occurrence: None)
  Receive Date: 20090820
  Receipt Date: 20090818
  Transmission Date: 20100115
  Serious: Yes (Other)
  Sender: FDA-Public Use
  Company Number: DE-WYE-G04129809

PATIENT
  Sex: Female

DRUGS (1)
  1. TREVILOR RETARD [Suspect]
     Route: 048
     Dates: start: 20090507

REACTIONS (4)
  - CEREBROSPINAL FLUID RETENTION [None]
  - CSF PRESSURE INCREASED [None]
  - FALL [None]
  - GAIT DISTURBANCE [None]
